FAERS Safety Report 11661606 (Version 4)
Quarter: 2016Q1

REPORT INFORMATION
  Report Type: Spontaneous
  Country: US (occurrence: US)
  Receive Date: 20151026
  Receipt Date: 20160310
  Transmission Date: 20160525
  Serious: No
  Sender: FDA-Public Use
  Company Number: US-PFIZER INC-2015355595

PATIENT
  Age: 72 Year
  Sex: Female
  Weight: 100 kg

DRUGS (1)
  1. SERTRALINE HCL [Suspect]
     Active Substance: SERTRALINE HYDROCHLORIDE
     Indication: HOT FLUSH
     Dosage: 25 MG, 1X/DAY

REACTIONS (1)
  - Drug ineffective for unapproved indication [Unknown]
